FAERS Safety Report 12194404 (Version 1)
Quarter: 2016Q1

REPORT INFORMATION
  Report Type: Spontaneous
  Country: US (occurrence: None)
  Receive Date: 20160318
  Receipt Date: 20160318
  Transmission Date: 20160526
  Serious: Yes (Disabling)
  Sender: FDA-Public Use
  Company Number: None

PATIENT
  Age: 46 Year
  Sex: Female
  Weight: 62.14 kg

DRUGS (9)
  1. OXYCODINE [Concomitant]
  2. VITAMIN 1 A DAY [Concomitant]
  3. SYNTHROID [Concomitant]
     Active Substance: LEVOTHYROXINE SODIUM
  4. LEXIPRO [Concomitant]
  5. B6 [Concomitant]
     Active Substance: PYRIDOXINE HYDROCHLORIDE
  6. OMEGA 3 [Concomitant]
     Active Substance: OMEGA-3 FATTY ACIDS
  7. CLONAZEPAM. [Suspect]
     Active Substance: CLONAZEPAM
  8. VITAMIN C [Concomitant]
     Active Substance: ASCORBIC ACID
  9. VITAMIN D [Concomitant]
     Active Substance: CHOLECALCIFEROL

REACTIONS (6)
  - Blepharospasm [None]
  - Dry eye [None]
  - Pain [None]
  - Depression [None]
  - Speech disorder [None]
  - Photophobia [None]

NARRATIVE: CASE EVENT DATE: 20160317
